FAERS Safety Report 5661898-2 (Version None)
Quarter: 2008Q1

REPORT INFORMATION
  Report Type: 
  Country: None (occurrence: None)
  Receive Date: 20080312
  Receipt Date: 20080305
  Transmission Date: 20080703
  Serious: No
  Sender: FDA-Public Use
  Company Number: US-BAXTER-2008BH001987

PATIENT
  Age: 32 Year
  Sex: Male
  Weight: 65 kg

DRUGS (1)
  1. HEPARIN SODIUM [Suspect]
     Indication: PROPHYLAXIS
     Dosage: DOSE UNIT:CUBIC CENTIMETER
     Route: 033
     Dates: start: 20080213, end: 20080213

REACTIONS (2)
  - CATHETER SITE INFECTION [None]
  - MALAISE [None]
